FAERS Safety Report 15956510 (Version 2)
Quarter: 2020Q3

REPORT INFORMATION
  Report Type: Spontaneous
  Country: PT (occurrence: PT)
  Receive Date: 20190213
  Receipt Date: 20200801
  Transmission Date: 20201102
  Serious: Yes (Life-Threatening, Hospitalization, Other)
  Sender: FDA-Public Use
  Company Number: PT-ACCORD-107369

PATIENT
  Age: 62 Year
  Sex: Male

DRUGS (1)
  1. METHOTREXATE. [Suspect]
     Active Substance: METHOTREXATE
     Indication: NON-HODGKIN^S LYMPHOMA
     Dosage: CYCLICAL TREATMENT, HE RECEIVED 4 CYCLES

REACTIONS (6)
  - Skin lesion [Unknown]
  - Mucosal inflammation [Unknown]
  - Tongue oedema [Unknown]
  - Aplasia [Unknown]
  - Laryngeal oedema [Unknown]
  - Febrile neutropenia [Unknown]
